FAERS Safety Report 5622808-7 (Version None)
Quarter: 2008Q1

REPORT INFORMATION
  Report Type: 
  Country: None (occurrence: None)
  Receive Date: 20080212
  Receipt Date: 20080131
  Transmission Date: 20080703
  Serious: Yes (Life-Threatening, Hospitalization, Other)
  Sender: FDA-Public Use
  Company Number: GB-BRISTOL-MYERS SQUIBB COMPANY-14071716

PATIENT
  Age: 68 Year
  Sex: Male

DRUGS (6)
  1. METFORMIN HCL [Suspect]
     Route: 048
  2. ASPIRIN [Concomitant]
     Route: 048
  3. ATORVASTATIN CALCIUM [Concomitant]
     Route: 048
  4. IRBESARTAN + HYDROCHLOROTHIAZIDE [Concomitant]
  5. ROSIGLITAZONE [Concomitant]
     Route: 048
  6. SPIRONOLACTONE [Concomitant]
     Route: 048

REACTIONS (4)
  - DIARRHOEA [None]
  - DYSURIA [None]
  - LACTIC ACIDOSIS [None]
  - VOMITING [None]
